FAERS Safety Report 24609290 (Version 1)
Quarter: 2024Q4

REPORT INFORMATION
  Report Type: Spontaneous
  Country: US (occurrence: None)
  Receive Date: 20241112
  Receipt Date: 20241112
  Transmission Date: 20250115
  Serious: Yes (Other)
  Sender: Public
  Company Number: None

PATIENT
  Age: 51 Year
  Sex: Female

DRUGS (1)
  1. BUPRENORPHINE\NALOXONE [Suspect]
     Active Substance: BUPRENORPHINE\NALOXONE
     Indication: Drug use disorder
     Dosage: FREQUENCY : TWICE A DAY;?
     Dates: start: 20241010

REACTIONS (4)
  - Flushing [None]
  - Nausea [None]
  - Vomiting [None]
  - Drug hypersensitivity [None]

NARRATIVE: CASE EVENT DATE: 20241010
